FAERS Safety Report 5743481-3 (Version None)
Quarter: 2008Q2

REPORT INFORMATION
  Report Type: 
  Country: None (occurrence: None)
  Receive Date: 20080520
  Receipt Date: 20080512
  Transmission Date: 20081010
  Serious: Yes (Hospitalization)
  Sender: FDA-Public Use
  Company Number: SE-JNJFOC-20080501972

PATIENT
  Age: 40 Year
  Sex: Male

DRUGS (5)
  1. REMICADE [Suspect]
     Indication: PSORIASIS
     Route: 042
  2. TIBINIDE [Concomitant]
  3. PYRIDOXIN [Concomitant]
  4. FOLACIN [Concomitant]
  5. METHOTREXATE [Concomitant]

REACTIONS (3)
  - PROSTATITIS [None]
  - RESPIRATORY TRACT INFECTION [None]
  - URINARY TRACT INFECTION [None]
